FAERS Safety Report 7931860 (Version 3)
Quarter: 2012Q4

REPORT INFORMATION
  Report Type: 
  Country: ES (occurrence: ES)
  Receive Date: 20110505
  Receipt Date: 20121026
  Transmission Date: 20130627
  Serious: Yes (Hospitalization)
  Sender: FDA-Public Use
  Company Number: ES-JNJFOC-20110412165

PATIENT
  Age: 63 Year
  Sex: Female

DRUGS (1)
  1. USTEKINUMAB [Suspect]
     Indication: PSORIASIS
     Dosage: initiation date: unspecified date between the 18 and the 22 of April 2011.
     Route: 058
     Dates: start: 201104

REACTIONS (1)
  - Oedema peripheral [Recovered/Resolved]
